FAERS Safety Report 10149510 (Version 1)
Quarter: 2014Q2

REPORT INFORMATION
  Report Type: Spontaneous
  Country: US (occurrence: US)
  Receive Date: 20140502
  Receipt Date: 20140502
  Transmission Date: 20141212
  Serious: Yes (Other)
  Sender: FDA-Public Use
  Company Number: US-SA-2014SA055775

PATIENT
  Age: 29 Year
  Sex: Female
  Weight: 122 kg

DRUGS (2)
  1. FABRAZYME [Suspect]
     Indication: FABRY^S DISEASE
     Route: 042
  2. ALL OTHER THERAPEUTIC PRODUCTS [Concomitant]
     Dates: start: 201404, end: 20140421

REACTIONS (6)
  - Pulmonary thrombosis [Unknown]
  - Sinus arrhythmia [Unknown]
  - Heart rate decreased [Unknown]
  - Lethargy [Unknown]
  - Hypoaesthesia [Unknown]
  - Fall [Unknown]
